FAERS Safety Report 5053625-7 (Version None)
Quarter: 2006Q3

REPORT INFORMATION
  Report Type: 
  Country: None (occurrence: None)
  Receive Date: 20060718
  Receipt Date: 20060707
  Transmission Date: 20061208
  Serious: Yes (Disabling, Other)
  Sender: FDA-Public Use
  Company Number: GB-AVENTIS-200617265GDDC

PATIENT
  Age: 38 Year
  Sex: Female
  Weight: 50 kg

DRUGS (5)
  1. RIFAMPICIN [Suspect]
     Indication: MENINGITIS MENINGOCOCCAL
     Dates: start: 20060602, end: 20060604
  2. METHADONE HCL [Suspect]
     Dosage: DOSE: UNK
  3. PAROXETINE HCL [Concomitant]
     Indication: DEPRESSION
  4. SALBUTAMOL [Concomitant]
     Indication: CHRONIC OBSTRUCTIVE PULMONARY DISEASE
     Dosage: DOSE: UNK
     Route: 055
  5. SALMETEROL [Concomitant]
     Indication: CHRONIC OBSTRUCTIVE PULMONARY DISEASE
     Dosage: DOSE: UNK
     Route: 055

REACTIONS (4)
  - ACTIVITIES OF DAILY LIVING IMPAIRED [None]
  - DISORIENTATION [None]
  - DRUG INTERACTION [None]
  - DRUG WITHDRAWAL SYNDROME [None]
